FAERS Safety Report 5402900-2 (Version None)
Quarter: 2007Q3

REPORT INFORMATION
  Report Type: 
  Country: None (occurrence: None)
  Receive Date: 20070801
  Receipt Date: 20070730
  Transmission Date: 20080115
  Serious: Yes (Other)
  Sender: FDA-Public Use
  Company Number: CA-AMGEN-US230821

PATIENT
  Sex: Female
  Weight: 79.9 kg

DRUGS (6)
  1. ENBREL [Suspect]
     Indication: RHEUMATOID ARTHRITIS
     Dates: start: 20030501, end: 20070501
  2. CELEBREX [Concomitant]
  3. PLAQUENIL [Concomitant]
  4. IMURAN [Concomitant]
  5. VITAMIN B-12 [Concomitant]
  6. TYLENOL W/ CODEINE NO. 3 [Concomitant]

REACTIONS (2)
  - BLEPHAROSPASM [None]
  - HERPES ZOSTER [None]
